FAERS Safety Report 24683663 (Version 2)
Quarter: 2024Q4

REPORT INFORMATION
  Report Type: Spontaneous
  Country: CH (occurrence: CH)
  Receive Date: 20241202
  Receipt Date: 20241205
  Transmission Date: 20250115
  Serious: Yes (Hospitalization, Other)
  Sender: TAKEDA
  Company Number: CH-INCYTE CORPORATION-2024IN012485

PATIENT
  Age: 62 Year
  Sex: Male

DRUGS (22)
  1. ICLUSIG [Suspect]
     Active Substance: PONATINIB HYDROCHLORIDE
     Indication: Acute lymphocytic leukaemia
     Dosage: 30 MILLIGRAM, QD
     Dates: start: 20240926, end: 20241007
  2. ICLUSIG [Suspect]
     Active Substance: PONATINIB HYDROCHLORIDE
     Dosage: UNK
     Dates: start: 20241010, end: 20241017
  3. HYDROXYUREA [Concomitant]
     Active Substance: HYDROXYUREA
     Indication: Acute lymphocytic leukaemia
     Dosage: 2 GRAM, BID
     Dates: start: 20240918
  4. ALLOPURINOL [Concomitant]
     Active Substance: ALLOPURINOL
     Indication: Acute lymphocytic leukaemia
     Dosage: 300 MILLIGRAM, QD
     Dates: start: 20240918
  5. PREDNISOLONE [Concomitant]
     Active Substance: PREDNISOLONE
     Indication: Acute lymphocytic leukaemia
     Dosage: 125 MILLIGRAM, QD
     Dates: start: 20240919, end: 20240925
  6. PREDNISOLONE [Concomitant]
     Active Substance: PREDNISOLONE
     Dosage: 60 MILLIGRAM, QD
     Dates: start: 20240925
  7. VALACYCLOVIR HYDROCHLORIDE [Concomitant]
     Active Substance: VALACYCLOVIR HYDROCHLORIDE
     Indication: Infection prophylaxis
     Dosage: 500 MILLIGRAM, BID
     Dates: start: 20240918
  8. BACTRIM [Concomitant]
     Active Substance: SULFAMETHOXAZOLE\TRIMETHOPRIM
     Indication: Infection prophylaxis
     Dosage: 800/160 MILLIGRAM, 3/WEEK
     Dates: start: 20240918
  9. ROSUVASTATIN [Concomitant]
     Active Substance: ROSUVASTATIN
     Indication: Hypercholesterolaemia
     Dosage: 10 MILLIGRAM, QD
     Dates: start: 20240927, end: 20241018
  10. Doxiproct [Concomitant]
     Indication: Haemorrhoids
     Dosage: UNK
     Route: 061
  11. Doxiproct [Concomitant]
     Indication: Haemorrhoids thrombosed
  12. CEFEPIME [Concomitant]
     Active Substance: CEFEPIME HYDROCHLORIDE
     Indication: Pyrexia
     Dosage: 2 GRAM
     Dates: start: 20240917, end: 20240917
  13. PIPERACILLIN AND TAZOBACTAM [Concomitant]
     Active Substance: PIPERACILLIN SODIUM\TAZOBACTAM SODIUM
     Indication: Pyrexia
     Dosage: 4.5 GRAM, TID
     Dates: start: 20240918, end: 20240922
  14. FLUCONAZOLE [Concomitant]
     Active Substance: FLUCONAZOLE
     Indication: Stomatitis
     Dosage: 200 MILLIGRAM, QD
     Dates: start: 20240918, end: 20240924
  15. METHOTREXATE [Concomitant]
     Active Substance: METHOTREXATE
     Indication: Infection prophylaxis
     Dosage: 15 MILLIGRAM
  16. METHOTREXATE [Concomitant]
     Active Substance: METHOTREXATE
     Dosage: 15 MILLIGRAM
  17. METHOTREXATE [Concomitant]
     Active Substance: METHOTREXATE
     Dosage: 15 MILLIGRAM
  18. CYTARABINE [Concomitant]
     Active Substance: CYTARABINE
     Indication: Infection prophylaxis
     Dosage: 40 MILLIGRAM
  19. CYTARABINE [Concomitant]
     Active Substance: CYTARABINE
     Dosage: 40 MILLIGRAM
  20. METHYLPREDNISOLONE [Concomitant]
     Active Substance: METHYLPREDNISOLONE
     Indication: Infection prophylaxis
     Dosage: 40 MILLIGRAM
  21. METHYLPREDNISOLONE [Concomitant]
     Active Substance: METHYLPREDNISOLONE
     Dosage: 40 MILLIGRAM
  22. VINCRISTINE [Concomitant]
     Active Substance: VINCRISTINE
     Indication: Acute lymphocytic leukaemia
     Dosage: 2 MILLIGRAM

REACTIONS (1)
  - Liver disorder [Recovering/Resolving]
